FAERS Safety Report 15868767 (Version 2)
Quarter: 2019Q2

REPORT INFORMATION
  Report Type: Spontaneous
  Country: JP (occurrence: JP)
  Receive Date: 20190125
  Receipt Date: 20190422
  Transmission Date: 20190711
  Serious: Yes (Other)
  Sender: FDA-Public Use
  Company Number: JP-PFIZER INC-2019027934

PATIENT
  Age: 87 Year
  Sex: Female

DRUGS (4)
  1. BETAHISTINE MESILATE [Concomitant]
     Active Substance: BETAHISTINE MESILATE
     Dosage: 6 MG, 3X/DAY
  2. PROTECADIN [Concomitant]
     Active Substance: LAFUTIDINE
     Dosage: UNK
  3. LYRICA [Suspect]
     Active Substance: PREGABALIN
     Indication: STENOSIS
     Dosage: 25 MG, 1X/DAY
     Route: 048
     Dates: start: 20170703, end: 20190121
  4. LATANOPROST. [Concomitant]
     Active Substance: LATANOPROST
     Dosage: UNK UNK, 1X/DAY

REACTIONS (2)
  - Glaucoma [Unknown]
  - Insomnia [Unknown]
